FAERS Safety Report 20779608 (Version 1)
Quarter: 2022Q2

REPORT INFORMATION
  Report Type: Spontaneous
  Country: US (occurrence: None)
  Receive Date: 20220503
  Receipt Date: 20220503
  Transmission Date: 20220720
  Serious: Yes (Other)
  Sender: FDA-Public Use
  Company Number: 2022A164900

PATIENT
  Sex: Female
  Weight: 73.5 kg

DRUGS (1)
  1. QUETIAPINE [Suspect]
     Active Substance: QUETIAPINE
     Indication: Bipolar disorder
     Route: 048

REACTIONS (6)
  - Aphasia [Unknown]
  - Migraine [Unknown]
  - Condition aggravated [Unknown]
  - Heart rate increased [Unknown]
  - Tachycardia [Unknown]
  - Dyspnoea [Unknown]
